FAERS Safety Report 10239631 (Version 1)
Quarter: 2014Q2

REPORT INFORMATION
  Report Type: Spontaneous
  Country: US (occurrence: US)
  Receive Date: 20140616
  Receipt Date: 20140616
  Transmission Date: 20141212
  Serious: Yes (Other)
  Sender: FDA-Public Use
  Company Number: US-PFIZER INC-2014164358

PATIENT
  Sex: Male

DRUGS (3)
  1. CHANTIX [Suspect]
     Dosage: 0.5 MG, UNK
     Dates: start: 2010
  2. CHANTIX [Suspect]
     Dosage: 1 MG, UNK
  3. LASIX [Concomitant]
     Dosage: UNK

REACTIONS (2)
  - Myocardial infarction [Unknown]
  - Hernia [Unknown]
